FAERS Safety Report 25523699 (Version 3)
Quarter: 2025Q4

REPORT INFORMATION
  Report Type: Spontaneous
  Country: US (occurrence: US)
  Receive Date: 20250707
  Receipt Date: 20251007
  Transmission Date: 20260118
  Serious: Yes (Hospitalization)
  Sender: MERCK SHARP & DOHME LLC
  Company Number: US-009507513-2301816

PATIENT
  Age: 71 Year
  Sex: Male

DRUGS (1)
  1. KEYTRUDA [Suspect]
     Active Substance: PEMBROLIZUMAB
     Indication: Nodular melanoma
     Route: 042
     Dates: start: 20230322, end: 20231031

REACTIONS (12)
  - Ill-defined disorder [Recovering/Resolving]
  - Gait inability [Recovering/Resolving]
  - Feeding disorder [Recovering/Resolving]
  - Quality of life decreased [Recovering/Resolving]
  - Neuropathy peripheral [Recovering/Resolving]
  - Temperature intolerance [Recovering/Resolving]
  - Cold sweat [Recovering/Resolving]
  - Gait disturbance [Recovering/Resolving]
  - Balance disorder [Recovering/Resolving]
  - Erectile dysfunction [Recovering/Resolving]
  - Immune-mediated adrenal insufficiency [Recovering/Resolving]
  - Anal incontinence [Recovering/Resolving]

NARRATIVE: CASE EVENT DATE: 20230101
